FAERS Safety Report 7303384-X (Version None)
Quarter: 2011Q1

REPORT INFORMATION
  Report Type: 
  Country: None (occurrence: None)
  Receive Date: 20110221
  Receipt Date: 20110216
  Transmission Date: 20110831
  Serious: Yes (Other)
  Sender: FDA-Public Use
  Company Number: KR-BAYER-2011-011776

PATIENT
  Sex: Female

DRUGS (3)
  1. YAZ [Suspect]
     Dosage: 1 DF, QD
     Route: 048
     Dates: start: 20110209
  2. GAMMA-LINOLENIC ACID [Concomitant]
     Indication: RASH GENERALISED
     Dosage: 1 DF, BID
     Route: 048
     Dates: start: 20100101
  3. YAZ [Suspect]
     Indication: FEMALE SEX HORMONE LEVEL ABNORMAL
     Dosage: 1 DF, QD
     Route: 048
     Dates: start: 20101118, end: 20110202

REACTIONS (5)
  - WEIGHT INCREASED [None]
  - CHEST PAIN [None]
  - MENSTRUATION DELAYED [None]
  - GENERALISED OEDEMA [None]
  - REFLUX OESOPHAGITIS [None]
